FAERS Safety Report 8824441 (Version 1)
Quarter: 2012Q4

REPORT INFORMATION
  Report Type: Report from Study
  Country: JP (occurrence: JP)
  Receive Date: 20121004
  Receipt Date: 20121004
  Transmission Date: 20130627
  Serious: Yes (Other)
  Sender: FDA-Public Use
  Company Number: JP-VERTEX PHARMACEUTICAL INC.-AE-2012-007599

PATIENT
  Age: 44 Year
  Sex: Female

DRUGS (16)
  1. VX-950 [Suspect]
     Indication: HEPATITIS C
     Dosage: 2250 mg, qd
     Route: 048
     Dates: start: 20120315, end: 20120317
  2. VX-950 [Suspect]
     Dosage: 1500 mg, qd
     Route: 048
     Dates: start: 20120317, end: 20120320
  3. VX-950 [Suspect]
     Dosage: 750 mg, qd
     Route: 048
     Dates: start: 20120320, end: 20120606
  4. RIBAVIRIN [Suspect]
     Indication: HEPATITIS C
     Dosage: 600 mg, qd
     Route: 048
     Dates: start: 20120315
  5. RIBAVIRIN [Suspect]
     Dosage: 400 mg, qd
     Route: 048
     Dates: start: 20120404, end: 20120829
  6. PEGINTERFERON ALFA-2B [Suspect]
     Indication: HEPATITIS C
     Dosage: 80 UNK, qw
     Route: 058
     Dates: start: 20120315, end: 20120829
  7. PREDNISOLONE [Concomitant]
     Dosage: 5 mg, qd
     Route: 048
  8. PREDNISOLONE [Concomitant]
     Dosage: 3 mg, qd
     Route: 048
  9. ONEALFA [Concomitant]
     Dosage: 0.5 ?g, qd
     Route: 048
  10. BONALON [Concomitant]
     Dosage: 35 mg, qd
     Route: 048
  11. TAKEPRON [Concomitant]
     Dosage: 15 mg, qd
     Route: 048
  12. AZULFIDINE [Concomitant]
     Dosage: 500 mg, qd
     Route: 048
  13. MAGMITT [Concomitant]
     Route: 048
  14. GASMOTIN [Concomitant]
     Dosage: 15 mg, qd
     Route: 048
     Dates: start: 20120315, end: 20120607
  15. LOXONIN [Concomitant]
     Route: 048
  16. PREDONINE                          /00016201/ [Concomitant]
     Dosage: 4 mg, qd
     Route: 048

REACTIONS (2)
  - Decreased appetite [Recovered/Resolved]
  - Nausea [Recovered/Resolved]
